FAERS Safety Report 18309295 (Version 1)
Quarter: 2020Q3

REPORT INFORMATION
  Report Type: Spontaneous
  Country: PT (occurrence: PT)
  Receive Date: 20200924
  Receipt Date: 20200924
  Transmission Date: 20201103
  Serious: Yes (Hospitalization)
  Sender: FDA-Public Use
  Company Number: PT-BAYER-2020-198006

PATIENT
  Age: 27 Year
  Sex: Female
  Weight: 82 kg

DRUGS (2)
  1. LEVONORGESTREL IUS [UNKNOWN] [Suspect]
     Active Substance: LEVONORGESTREL
     Route: 015
  2. MINOCYCLINE [Suspect]
     Active Substance: MINOCYCLINE HYDROCHLORIDE
     Indication: FOLLICULITIS
     Dosage: 100 ML

REACTIONS (2)
  - Condition aggravated [Not Recovered/Not Resolved]
  - Intracranial pressure increased [Not Recovered/Not Resolved]
